FAERS Safety Report 17615162 (Version 2)
Quarter: 2021Q3

REPORT INFORMATION
  Report Type: Spontaneous
  Country: US (occurrence: US)
  Receive Date: 20200402
  Receipt Date: 20210728
  Transmission Date: 20211014
  Serious: Yes (Other)
  Sender: FDA-Public Use
  Company Number: US-PFIZER INC-2020136618

PATIENT
  Age: 65 Year
  Sex: Male

DRUGS (1)
  1. VYNDAMAX [Suspect]
     Active Substance: TAFAMIDIS
     Indication: AMYLOIDOSIS
     Dosage: 61 MG, UNK

REACTIONS (5)
  - Hypoaesthesia [Not Recovered/Not Resolved]
  - Cardiac failure [Unknown]
  - Sinusitis [Unknown]
  - Palpitations [Unknown]
  - Off label use [Unknown]
